FAERS Safety Report 9779046 (Version 2)
Quarter: 2014Q1

REPORT INFORMATION
  Report Type: Spontaneous
  Country: SE (occurrence: SE)
  Receive Date: 20131223
  Receipt Date: 20140227
  Transmission Date: 20141002
  Serious: Yes (Death, Hospitalization)
  Sender: FDA-Public Use
  Company Number: SE-ASTRAZENECA-2013SE92747

PATIENT
  Age: 77 Year
  Sex: Male

DRUGS (2)
  1. BRILIQUE [Suspect]
     Route: 048
     Dates: start: 20130218, end: 20131129
  2. TROMBYL (NON-AZ DRUG) [Suspect]
     Route: 065
     Dates: start: 20130218, end: 20131129

REACTIONS (4)
  - Cerebral haemorrhage [Fatal]
  - Anaemia [Unknown]
  - Erosive duodenitis [Unknown]
  - Gastrointestinal haemorrhage [Unknown]
